FAERS Safety Report 5470087-6 (Version None)
Quarter: 2007Q3

REPORT INFORMATION
  Report Type: 
  Country: None (occurrence: None)
  Receive Date: 20070927
  Receipt Date: 20070918
  Transmission Date: 20080115
  Serious: Yes (Disabling, Other)
  Sender: FDA-Public Use
  Company Number: IE-PFIZER INC-2007052658

PATIENT
  Age: 52 Year
  Sex: Male

DRUGS (4)
  1. SUTENT [Suspect]
     Indication: METASTATIC RENAL CELL CARCINOMA
     Route: 048
  2. MORPHINE SULFATE [Concomitant]
     Indication: CANCER PAIN
     Route: 048
  3. MOVICOL [Concomitant]
     Indication: CONSTIPATION
     Route: 048
     Dates: start: 20070503
  4. SENNA [Concomitant]
     Indication: CONSTIPATION
     Route: 048
     Dates: start: 20070503

REACTIONS (2)
  - MIGRAINE [None]
  - POLYCYTHAEMIA [None]
